FAERS Safety Report 6884349-9 (Version None)
Quarter: 2010Q3

REPORT INFORMATION
  Report Type: 
  Country: None (occurrence: None)
  Receive Date: 20100729
  Receipt Date: 20070702
  Transmission Date: 20110219
  Serious: No
  Sender: FDA-Public Use
  Company Number: US-PFIZER INC-2007051868

PATIENT
  Sex: Female
  Weight: 79.545 kg

DRUGS (5)
  1. CELEBREX [Suspect]
     Indication: ARTHRALGIA
  2. METOPROLOL TARTRATE [Concomitant]
     Indication: ARRHYTHMIA
  3. OMEPRAZOLE [Concomitant]
  4. CLONAZEPAM [Concomitant]
  5. ALL OTHER THERAPEUTIC PRODUCTS [Concomitant]
     Dates: end: 20070101

REACTIONS (2)
  - MALABSORPTION [None]
  - PAIN [None]
